FAERS Safety Report 8157930-7 (Version None)
Quarter: 2012Q1

REPORT INFORMATION
  Report Type: 
  Country: None (occurrence: None)
  Receive Date: 20120222
  Receipt Date: 20120217
  Transmission Date: 20120608
  Serious: Yes (Hospitalization, Other)
  Sender: FDA-Public Use
  Company Number: PHHY2010ZA61772

PATIENT
  Age: 80 Year
  Sex: Female

DRUGS (6)
  1. ZOLEDRONOC ACID [Suspect]
     Dosage: 5 MG, UNK
     Route: 042
     Dates: start: 20100901
  2. CALCIUM [Concomitant]
     Dosage: UNK UKN, UNK
  3. KANTREXIL [Concomitant]
     Dosage: UNK UKN, UNK
  4. ZOLEDRONOC ACID [Suspect]
     Dosage: 5 MG, UNK
     Route: 042
     Dates: start: 20090501
  5. AUGMENTIN '125' [Concomitant]
     Dosage: UNK UKN, UNK
  6. VITAMIN B COMPLEX CAP [Concomitant]
     Dosage: UNK UKN, UNK

REACTIONS (11)
  - FOREARM FRACTURE [None]
  - FRACTURE [None]
  - OPEN FRACTURE [None]
  - MALAISE [None]
  - HIP FRACTURE [None]
  - PELVIC FRACTURE [None]
  - CYSTITIS ESCHERICHIA [None]
  - OSTEOARTHRITIS [None]
  - FALL [None]
  - ANAEMIA [None]
  - ILIUM FRACTURE [None]
